FAERS Safety Report 9888728 (Version 2)
Quarter: 2014Q1

REPORT INFORMATION
  Report Type: Report from Study
  Country: CA (occurrence: CA)
  Receive Date: 20140211
  Receipt Date: 20140211
  Transmission Date: 20141002
  Serious: Yes (Life-Threatening, Hospitalization)
  Sender: FDA-Public Use
  Company Number: CA-BRISTOL-MYERS SQUIBB COMPANY-17375437

PATIENT
  Age: 49 Year
  Sex: Female

DRUGS (4)
  1. ORENCIA [Suspect]
     Indication: RHEUMATOID ARTHRITIS
     Dosage: 1 DF = 500 UNITS NOS?20JUN13?1 PER 2 WKS
     Dates: start: 20120713
  2. PREDNISONE [Concomitant]
  3. MELOXICAM [Concomitant]
  4. TYLENOL [Concomitant]

REACTIONS (4)
  - Coma [Unknown]
  - Aneurysm [Unknown]
  - Headache [Unknown]
  - Nausea [Unknown]
